FAERS Safety Report 4498472-X (Version None)
Quarter: 2004Q4

REPORT INFORMATION
  Report Type: 
  Country: None (occurrence: None)
  Receive Date: 20041105
  Receipt Date: 20041029
  Transmission Date: 20050328
  Serious: Yes (Hospitalization)
  Sender: FDA-Public Use
  Company Number: MK200409-0221-2

PATIENT
  Sex: Female

DRUGS (2)
  1. ANAFRANIL [Suspect]
     Dosage: 75MG, DAY
     Dates: end: 20040907
  2. LEXOTAN (BROMAZEPAM) [Suspect]
     Dosage: 5MG, TID
     Dates: end: 20040907

REACTIONS (7)
  - CEREBRAL VENTRICLE DILATATION [None]
  - DRUG WITHDRAWAL SYNDROME NEONATAL [None]
  - DYSPEPSIA [None]
  - NEONATAL APNOEIC ATTACK [None]
  - NEONATAL HEPATOMEGALY [None]
  - SOMNOLENCE NEONATAL [None]
  - TREMOR NEONATAL [None]
